FAERS Safety Report 6084771-7 (Version None)
Quarter: 2009Q1

REPORT INFORMATION
  Report Type: 
  Country: None (occurrence: None)
  Receive Date: 20090217
  Receipt Date: 20090204
  Transmission Date: 20090719
  Serious: Yes (Death, Hospitalization)
  Sender: FDA-Public Use
  Company Number: 2008JP004495

PATIENT
  Age: 58 Year
  Sex: Male

DRUGS (51)
  1. TACROLIMUS [Suspect]
     Indication: STEM CELL TRANSPLANT
     Dosage: 2 MG, /D ORAL; 1.5 MG, /D, ORAL; 1 MG, BID, ORAL; 3 MG, /D, ORAL; 1 MG, /D, ORAL
     Route: 048
     Dates: end: 20081031
  2. TACROLIMUS [Suspect]
     Indication: STEM CELL TRANSPLANT
     Dosage: 2 MG, /D ORAL; 1.5 MG, /D, ORAL; 1 MG, BID, ORAL; 3 MG, /D, ORAL; 1 MG, /D, ORAL
     Route: 048
     Dates: start: 20081101, end: 20081102
  3. TACROLIMUS [Suspect]
     Indication: STEM CELL TRANSPLANT
     Dosage: 2 MG, /D ORAL; 1.5 MG, /D, ORAL; 1 MG, BID, ORAL; 3 MG, /D, ORAL; 1 MG, /D, ORAL
     Route: 048
     Dates: end: 20090122
  4. TACROLIMUS [Suspect]
     Indication: STEM CELL TRANSPLANT
     Dosage: 2 MG, /D ORAL; 1.5 MG, /D, ORAL; 1 MG, BID, ORAL; 3 MG, /D, ORAL; 1 MG, /D, ORAL
     Route: 048
     Dates: start: 20080226
  5. ACYCLOVIR [Concomitant]
  6. METHYLPREDNISOLOE (METHYLPRESONDISOLOE) INJECTION [Concomitant]
  7. ACETAMINOPHEN FORMULATION UNKNOWN [Concomitant]
  8. N-ACETYLCYSTEINE FORMULATION UNKNOWN [Concomitant]
  9. DEFLAZACORT (DEFLAZACORT) FORMULATION UNKNOWN [Concomitant]
  10. HYDROXYZINE HYDROCHLORIDE (HYDROXYZINE HYDROCHLORIDE) FORMULATION UNKN [Concomitant]
  11. ITRACONAZOL (ITRACONAZOLE) FORMULATION UNKNOWN [Concomitant]
  12. CALCIUM POLYSTYRENE SULFONATE (CALCIUM POLYSTYRENE SULFONATE) FORMULAT [Concomitant]
  13. MYCOPHENOLATE MOFETIL [Concomitant]
  14. CARBOXMETHYLCELLULOSE SODIUM (CARMELLOSE SODIUM) FORMULATION UNKNOWN [Concomitant]
  15. SULFAMETHOXAZOLE AND TRIMETHOPRIM (SULFAMETHOXAZOL, TRIMETHOPRIM) FORM [Concomitant]
  16. SILYMARIN (SILYBUM MARIANUM) FORMULATION UNKNOWN [Concomitant]
  17. TRAMADOL (TRAMADOL) FORMULATION UNKNOWN [Concomitant]
  18. CLARITHROMYCIN (CLARITHROMYCIN) FORMULATION UNKNOWN [Concomitant]
  19. LEVOFLOXACIN (LEVOFLOXACIN) FORMULATION UNKNOWN [Concomitant]
  20. ROXITHROMYCIN (ROXITHROMYCIN) INJECTION [Concomitant]
  21. MUPIROCIN (MUPIROCIN) FORMULATION UNKNOWN [Concomitant]
  22. SODIUM BICARBONATE (SODIUM BICARBONATE) FORMULATION UNKNOWN [Concomitant]
  23. N(2)-L-ALANYL-L-GLUT INJECTION [Concomitant]
  24. ALMAGATE (ALMAGATE) FORMULATION UNKNOWN [Concomitant]
  25. BIPHENYL DICARBOXYLATE (BIFENDATE) FORMULATION UKNOWN [Concomitant]
  26. BROMHEXINE (BROMHEXINE) FORMULATION UNKNOWN [Concomitant]
  27. CHLORPHENIRAMINE MAL W/PHENYLPROPANOLAMIN HCL (CHLORPHENAMINE MALEATE, [Concomitant]
  28. DOBUTAMINE HYDROCHLORIDE (DOBUTAMINE HYDROCHLORIDE) FORMULATION UNKNOW [Concomitant]
  29. DOPAMINE HYCROCHLORIDE (DOPAMINE HYDROCHLORIDE) FORMULATION UNKNOWN [Concomitant]
  30. FLICONAZOLE (FLUCONAZOLE) FORMULATION UNKNOWN [Concomitant]
  31. FUROSEMIDE (FUROSEMIDE) FORMULATION UNKNOWN [Concomitant]
  32. BENZYDAMINE (BENZYDAMINE) FORMULATION UNKNOWN [Concomitant]
  33. GANCICLOVIR SODIUM (GANCICLOVIR SODIUM) FORMULATION UNKNOWN [Concomitant]
  34. HYDROCORTISONE SODIUM SUCCINATE (HYDROCORTISONE SODIUM SUCCINATE) FORM [Concomitant]
  35. HUMAN IMMUNOGLOBULIN (IMMUNOGLOULIN) FORMULATION UNKNOWN [Concomitant]
  36. LACTITOL (LACTITOL) FORMULATON UNKNOWN [Concomitant]
  37. MAGNESIUM HYDROXIDE FORUMATION UNKNOWN [Concomitant]
  38. MIDAZOLAM FORMULATION UNKNOWN [Concomitant]
  39. NORADRENALIN (NOREPINEPHRINE) FORMULATION UNKNOWN [Concomitant]
  40. FENTANYL (FENTANYL) FORMULATION UNKNOWN [Concomitant]
  41. MORPHINE HYDROCHLORIDE (MORPHINE HYDROCHLORIDE) FORMULATION UNKNOWN [Concomitant]
  42. PETHIDINE HYDROCHLORIDE (PETHIDINE HYDROCHLORIDE) FORMULATION UNKNOWN [Concomitant]
  43. ORNITHINE ASPARTATE (ORNITHINE ASPARATE) FORMULATION UNKNOWN [Concomitant]
  44. RABEPRAZOLE (RABEPRAZOLE) FORMULATION UNKNOWN [Concomitant]
  45. RANITIDINE [Concomitant]
  46. SUCRALFATE (SUCRALFATE) FORMULATION UNKNOWN [Concomitant]
  47. THIAMINE HYDROCHLORIDE (THIAMINE HYDROCHLORIDE) FORMULATION UNKNOWN [Concomitant]
  48. ASCORBIC ACID (ASCORBIC ACID) FORMULATION UNKNOWN [Concomitant]
  49. AMPHOTERICIN B FORMULATION UNKNOWN [Concomitant]
  50. LEVOFLOXACIN (LEVOFLOXACIN) FORMULATION UNKNOWN [Concomitant]
  51. MOXIFLOXACIN  (MOXIFLOXACIN) FORMULATION UNKNOWN [Concomitant]

REACTIONS (5)
  - ACUTE GRAFT VERSUS HOST DISEASE IN INTESTINE [None]
  - ACUTE GRAFT VERSUS HOST DISEASE IN SKIN [None]
  - GRAFT VERSUS HOST DISEASE [None]
  - HERPES ZOSTER [None]
  - PNEUMONIA [None]
